FAERS Safety Report 10794165 (Version 2)
Quarter: 2015Q1

REPORT INFORMATION
  Report Type: Spontaneous
  Country: JP (occurrence: JP)
  Receive Date: 20150213
  Receipt Date: 20150225
  Transmission Date: 20150721
  Serious: Yes (Other)
  Sender: FDA-Public Use
  Company Number: JP-GLAXOSMITHKLINE-JP2015JPN016403

PATIENT

DRUGS (1)
  1. RELENZA [Suspect]
     Active Substance: ZANAMIVIR
     Indication: INFLUENZA
     Dosage: 10 MG, UNK
     Route: 055
     Dates: start: 201501

REACTIONS (4)
  - Memory impairment [Unknown]
  - Increased appetite [Unknown]
  - Delirium [Unknown]
  - Abnormal behaviour [Unknown]
